FAERS Safety Report 8236888-6 (Version None)
Quarter: 2012Q1

REPORT INFORMATION
  Report Type: 
  Country: None (occurrence: None)
  Receive Date: 20120327
  Receipt Date: 20110506
  Transmission Date: 20120608
  Serious: No
  Sender: FDA-Public Use
  Company Number: US-GLAXOSMITHKLINE-A0926402A

PATIENT
  Age: 56 Year
  Sex: Female

DRUGS (7)
  1. LIPITOR [Concomitant]
  2. VITAMIN D [Concomitant]
  3. MULTI-VITAMINS [Concomitant]
  4. UNKNOWN MEDICATION [Concomitant]
  5. CALCIUM CARBONATE [Concomitant]
  6. LUXIQ [Suspect]
     Indication: SEBORRHOEIC DERMATITIS
     Dosage: 1APP TWICE PER DAY
     Route: 061
     Dates: start: 20110428
  7. SUMATRIPTAN [Concomitant]

REACTIONS (7)
  - TREMOR [None]
  - HEADACHE [None]
  - ASTHENIA [None]
  - NAUSEA [None]
  - GASTROOESOPHAGEAL REFLUX DISEASE [None]
  - POLLAKIURIA [None]
  - DIZZINESS [None]
